FAERS Safety Report 8475646 (Version 22)
Quarter: 2015Q3

REPORT INFORMATION
  Report Type: Report from Study
  Country: CA (occurrence: CA)
  Receive Date: 20120326
  Receipt Date: 20150805
  Transmission Date: 20151125
  Serious: Yes (Other)
  Sender: FDA-Public Use
  Company Number: PHHY2012CA005932

PATIENT
  Age: 48 Year
  Sex: Female
  Weight: 47.62 kg

DRUGS (2)
  1. SANDOSTATIN LAR DEPOT [Suspect]
     Active Substance: OCTREOTIDE ACETATE
     Indication: NEUROENDOCRINE TUMOUR
     Dosage: 30 MG, QMO
     Route: 030
     Dates: start: 20111124
  2. AVASTIN [Suspect]
     Active Substance: BEVACIZUMAB
     Indication: PRODUCT USED FOR UNKNOWN INDICATION
     Dosage: UNK
     Route: 065
     Dates: start: 201209

REACTIONS (25)
  - Uterine polyp [Unknown]
  - Blood pressure increased [Recovering/Resolving]
  - Injection site bruising [Unknown]
  - Skin warm [Unknown]
  - Cough [Unknown]
  - Menstruation irregular [Unknown]
  - Oropharyngeal pain [Unknown]
  - Weight increased [Unknown]
  - Heart rate decreased [Recovering/Resolving]
  - Dysphonia [Unknown]
  - Neck pain [Unknown]
  - Oedema [Recovering/Resolving]
  - Anxiety [Unknown]
  - Body temperature decreased [Unknown]
  - Blood pressure decreased [Unknown]
  - Nasopharyngitis [Recovering/Resolving]
  - Muscle spasms [Unknown]
  - Feeling cold [Unknown]
  - Injection site pain [Recovered/Resolved]
  - Viral infection [Unknown]
  - Dry skin [Unknown]
  - Diarrhoea [Recovered/Resolved]
  - Injection site haemorrhage [Unknown]
  - Blood iron decreased [Unknown]
  - Injection site pain [Recovered/Resolved]

NARRATIVE: CASE EVENT DATE: 20131022
